FAERS Safety Report 4636733-1 (Version None)
Quarter: 2005Q2

REPORT INFORMATION
  Report Type: 
  Country: None (occurrence: None)
  Receive Date: 20050414
  Receipt Date: 20050405
  Transmission Date: 20051028
  Serious: Yes (Life-Threatening)
  Sender: FDA-Public Use
  Company Number: 2005AP01514

PATIENT
  Age: 72 Year
  Sex: Male

DRUGS (2)
  1. DIPRIVAN [Suspect]
     Indication: GENERAL ANAESTHESIA
     Dosage: 5 UG/ML IV
     Route: 042
     Dates: start: 20050307, end: 20050307
  2. MUSCULAX [Suspect]
     Dosage: 10 MG DAILY IV
     Route: 042
     Dates: start: 20050307, end: 20050307

REACTIONS (4)
  - ANAESTHETIC COMPLICATION [None]
  - ANAPHYLACTOID REACTION [None]
  - ERYTHEMA [None]
  - HYPOTENSION [None]
